FAERS Safety Report 8485458-3 (Version None)
Quarter: 2012Q3

REPORT INFORMATION
  Report Type: 
  Country: None (occurrence: None)
  Receive Date: 20120703
  Receipt Date: 20120626
  Transmission Date: 20120928
  Serious: Yes (Other)
  Sender: FDA-Public Use
  Company Number: AR-ROCHE-1082947

PATIENT
  Sex: Male

DRUGS (1)
  1. LUCENTIS [Suspect]
     Indication: PRODUCT USED FOR UNKNOWN INDICATION
     Route: 050
     Dates: start: 20110617

REACTIONS (5)
  - VISION BLURRED [None]
  - EYE PAIN [None]
  - OCULAR DISCOMFORT [None]
  - VISUAL ACUITY REDUCED [None]
  - CATARACT [None]
